FAERS Safety Report 9474190 (Version 2)
Quarter: 2013Q3

REPORT INFORMATION
  Report Type: Spontaneous
  Country: US (occurrence: US)
  Receive Date: 20130823
  Receipt Date: 20130918
  Transmission Date: 20140515
  Serious: Yes (Other)
  Sender: FDA-Public Use
  Company Number: US-TEVA-427770USA

PATIENT
  Age: 26 Year
  Sex: Female
  Weight: 99.43 kg

DRUGS (1)
  1. PARAGARD 380A [Suspect]
     Indication: CONTRACEPTION
     Route: 015
     Dates: start: 20120719

REACTIONS (2)
  - Device dislocation [Recovered/Resolved]
  - Vulvovaginal discomfort [Unknown]
